FAERS Safety Report 22198897 (Version 1)
Quarter: 2023Q2

REPORT INFORMATION
  Report Type: Report from Study
  Country: US (occurrence: US)
  Receive Date: 20230411
  Receipt Date: 20230411
  Transmission Date: 20230721
  Serious: Yes (Other)
  Sender: FDA-Public Use
  Company Number: US-BAYER-2023A034472

PATIENT
  Age: 54 Year
  Sex: Male

DRUGS (4)
  1. STIVARGA [Suspect]
     Active Substance: REGORAFENIB
     Indication: Gastrointestinal stromal tumour
     Dosage: 80 MG, QD
     Route: 048
     Dates: start: 20230313
  2. STIVARGA [Suspect]
     Active Substance: REGORAFENIB
     Indication: Metastasis
     Dosage: 120 MG, QD
     Dates: start: 20230405
  3. STIVARGA [Suspect]
     Active Substance: REGORAFENIB
     Indication: Osteosarcoma
  4. ELIQUIS [Concomitant]
     Active Substance: APIXABAN
     Dosage: UNK

REACTIONS (11)
  - Gait disturbance [None]
  - Gastrointestinal disorder [Recovered/Resolved]
  - Abdominal discomfort [Recovered/Resolved]
  - Arthralgia [Recovered/Resolved]
  - Fatigue [Recovered/Resolved]
  - Flatulence [None]
  - Muscle spasms [None]
  - Impaired work ability [None]
  - Diarrhoea [None]
  - Hypotension [None]
  - Off label use [None]

NARRATIVE: CASE EVENT DATE: 20230313
